FAERS Safety Report 11722411 (Version 1)
Quarter: 2015Q4

REPORT INFORMATION
  Report Type: Spontaneous
  Country: AU (occurrence: AU)
  Receive Date: 20151111
  Receipt Date: 20151111
  Transmission Date: 20160304
  Serious: Yes (Hospitalization, Other)
  Sender: FDA-Public Use
  Company Number: AU-WATSON-2015-19781

PATIENT
  Age: 76 Year
  Sex: Female

DRUGS (4)
  1. CANDESARTAN [Concomitant]
     Active Substance: CANDESARTAN
     Indication: HYPERTENSION
     Dosage: 16 MG, DAILY
     Route: 065
  2. GENTAMICIN (UNKNOWN) [Suspect]
     Active Substance: GENTAMICIN
     Indication: EVIDENCE BASED TREATMENT
     Dosage: 520 MG DAY 1
     Route: 065
  3. FLUCLOXACILLIN [Concomitant]
     Active Substance: FLUCLOXACILLIN
     Indication: EVIDENCE BASED TREATMENT
     Dosage: 2 G QID
     Route: 042
  4. GENTAMICIN (UNKNOWN) [Suspect]
     Active Substance: GENTAMICIN
     Dosage: 300 MG DAY 2
     Route: 065

REACTIONS (2)
  - Acute kidney injury [Recovered/Resolved]
  - Toxicity to various agents [Recovered/Resolved]
